FAERS Safety Report 6650562-9 (Version None)
Quarter: 2010Q1

REPORT INFORMATION
  Report Type: 
  Country: None (occurrence: None)
  Receive Date: 20100325
  Receipt Date: 20100308
  Transmission Date: 20100710
  Serious: Yes (Hospitalization)
  Sender: FDA-Public Use
  Company Number: US-BIOGENIDEC-2010BI007559

PATIENT
  Age: 44 Year
  Sex: Female
  Weight: 54 kg

DRUGS (2)
  1. AVONEX [Suspect]
     Indication: MULTIPLE SCLEROSIS
     Route: 030
     Dates: start: 20010721, end: 20030101
  2. AVONEX [Suspect]
     Route: 030
     Dates: start: 20030101

REACTIONS (7)
  - DECREASED APPETITE [None]
  - DRUG HYPERSENSITIVITY [None]
  - EYE PENETRATION [None]
  - MULTIPLE SCLEROSIS RELAPSE [None]
  - THYROID DISORDER [None]
  - WEIGHT GAIN POOR [None]
  - WEIGHT INCREASED [None]
